FAERS Safety Report 25884016 (Version 1)
Quarter: 2025Q4

REPORT INFORMATION
  Report Type: Spontaneous
  Country: EU (occurrence: EU)
  Receive Date: 20251006
  Receipt Date: 20251006
  Transmission Date: 20260117
  Serious: Yes (Death, Life-Threatening, Other)
  Sender: Steriscience PTE
  Company Number: EU-STERISCIENCE B.V.-2025-ST-001536

PATIENT
  Age: 67 Year
  Sex: Male

DRUGS (4)
  1. VANCOMYCIN [Suspect]
     Active Substance: VANCOMYCIN
     Indication: Klebsiella infection
     Dosage: UNK
     Route: 065
  2. MEROPENEM [Suspect]
     Active Substance: MEROPENEM
     Indication: Klebsiella infection
     Dosage: UNK
     Route: 065
  3. LINEZOLID [Suspect]
     Active Substance: LINEZOLID
     Indication: Klebsiella infection
     Dosage: UNK
     Route: 065
  4. COLISTIN [Suspect]
     Active Substance: COLISTIN
     Indication: Klebsiella infection
     Dosage: UNK
     Route: 065

REACTIONS (3)
  - Cardiac arrest [Fatal]
  - Drug ineffective [Fatal]
  - Pathogen resistance [Unknown]
